FAERS Safety Report 5635197-9 (Version None)
Quarter: 2008Q1

REPORT INFORMATION
  Report Type: 
  Country: None (occurrence: None)
  Receive Date: 20080222
  Receipt Date: 20080221
  Transmission Date: 20080703
  Serious: Yes (Death)
  Sender: FDA-Public Use
  Company Number: US-BOEHRINGER INGELHEIM GMBH, GERMANY-2008-BP-02680BP

PATIENT

DRUGS (2)
  1. APTIVUS/RITONAVIR CAPSULES [Suspect]
  2. T-20 [Suspect]

REACTIONS (2)
  - COMPLETED SUICIDE [None]
  - DEPRESSION [None]
